FAERS Safety Report 15662978 (Version 2)
Quarter: 2019Q2

REPORT INFORMATION
  Report Type: Spontaneous
  Country: US (occurrence: US)
  Receive Date: 20181127
  Receipt Date: 20190506
  Transmission Date: 20190711
  Serious: Yes (Other)
  Sender: FDA-Public Use
  Company Number: US-SA-2018SA321445

PATIENT
  Age: 66 Year
  Sex: Female
  Weight: 54.4 kg

DRUGS (14)
  1. TAXOTERE [Suspect]
     Active Substance: DOCETAXEL
     Indication: ENDOMETRIAL CANCER
     Dosage: 137 MG, Q3W
     Route: 042
     Dates: start: 20080410, end: 20080410
  2. LORAZEPAM. [Concomitant]
     Active Substance: LORAZEPAM
     Dosage: 0.5 MG, QD
     Route: 065
  3. LISINOPRIL. [Concomitant]
     Active Substance: LISINOPRIL
     Dosage: UNK
     Route: 065
     Dates: start: 2004
  4. TAXOL [Concomitant]
     Active Substance: PACLITAXEL
     Route: 065
  5. METOPROLOL. [Concomitant]
     Active Substance: METOPROLOL
     Dosage: UNK UNK, UNK
     Route: 065
     Dates: start: 2004
  6. ANZEMET [Concomitant]
     Active Substance: DOLASETRON MESYLATE
     Dosage: 100 MG
     Route: 042
  7. FOSAMAX [Concomitant]
     Active Substance: ALENDRONATE SODIUM
     Dosage: 70 MG
     Route: 065
  8. DIOVAN [Concomitant]
     Active Substance: VALSARTAN
     Dosage: 80 MG
     Route: 065
  9. PARAPLATIN [Concomitant]
     Active Substance: CARBOPLATIN
     Dosage: 385 MG, UNK
     Route: 065
  10. TAXOTERE [Suspect]
     Active Substance: DOCETAXEL
     Dosage: 137 MG, Q3W
     Route: 042
     Dates: start: 20080701, end: 20080701
  11. PRAVASTATIN. [Concomitant]
     Active Substance: PRAVASTATIN
     Dosage: UNK
     Route: 065
     Dates: start: 2004
  12. BENADRYL [Concomitant]
     Active Substance: DIPHENHYDRAMINE HYDROCHLORIDE
     Dosage: 25 MG
     Route: 042
  13. JANUVIA [Concomitant]
     Active Substance: SITAGLIPTIN PHOSPHATE
     Dosage: UNK
     Route: 065
     Dates: start: 2004
  14. DECADRON [Concomitant]
     Active Substance: DEXAMETHASONE
     Dosage: 8 MG, BID
     Route: 048

REACTIONS (2)
  - Psychological trauma [Unknown]
  - Alopecia [Recovering/Resolving]

NARRATIVE: CASE EVENT DATE: 200804
